FAERS Safety Report 6096579-7 (Version None)
Quarter: 2009Q1

REPORT INFORMATION
  Report Type: 
  Country: None (occurrence: None)
  Receive Date: 20090225
  Receipt Date: 20090212
  Transmission Date: 20090719
  Serious: Yes (Death)
  Sender: FDA-Public Use
  Company Number: 1-17529427

PATIENT
  Age: 51 Year
  Sex: Male

DRUGS (1)
  1. FENTANYL TRANSDERMAL SYSTEM [Suspect]
     Indication: ANALGESIA
     Dosage: TRANSDERMAL
     Route: 062

REACTIONS (6)
  - ARRHYTHMIA [None]
  - DRUG ABUSE [None]
  - LEFT VENTRICULAR HYPERTROPHY [None]
  - PULMONARY OEDEMA [None]
  - SUDDEN DEATH [None]
  - THERMAL BURN [None]
